FAERS Safety Report 7015200-4 (Version None)
Quarter: 2010Q3

REPORT INFORMATION
  Report Type: 
  Country: None (occurrence: None)
  Receive Date: 20100927
  Receipt Date: 20100917
  Transmission Date: 20110219
  Serious: Yes (Hospitalization, Other)
  Sender: FDA-Public Use
  Company Number: US-SANOFI-AVENTIS-2010SA056910

PATIENT
  Sex: Female
  Weight: 59 kg

DRUGS (6)
  1. PLAVIX [Suspect]
     Route: 048
     Dates: start: 19990101, end: 20060101
  2. OTHER LIPID MODIFYING AGENTS [Concomitant]
     Dates: start: 19990101, end: 20060101
  3. TAMOXIFEN CITRATE [Concomitant]
     Indication: PRODUCT USED FOR UNKNOWN INDICATION
     Dates: start: 19950101, end: 20010101
  4. COUMADIN [Concomitant]
     Dates: start: 20050101
  5. DIOVAN [Concomitant]
     Dates: start: 20100801
  6. CLONIDINE [Concomitant]
     Dates: start: 20080101

REACTIONS (5)
  - LABORATORY TEST ABNORMAL [None]
  - MALAISE [None]
  - OEDEMA PERIPHERAL [None]
  - OXYGEN SATURATION DECREASED [None]
  - THROMBOSIS [None]
